FAERS Safety Report 21374570 (Version 4)
Quarter: 2024Q3

REPORT INFORMATION
  Report Type: Spontaneous
  Country: JP (occurrence: JP)
  Receive Date: 20220926
  Receipt Date: 20240816
  Transmission Date: 20241016
  Serious: Yes (Other)
  Sender: NOVO NORDISK
  Company Number: JP-NOVOPROD-819651

PATIENT
  Age: 4 Decade
  Sex: Female
  Weight: 59.8 kg

DRUGS (1)
  1. CATRIDECACOG [Suspect]
     Active Substance: CATRIDECACOG
     Indication: Factor XIII deficiency
     Dosage: 35 IU/KG
     Route: 042
     Dates: start: 20191212

REACTIONS (2)
  - Intrapartum haemorrhage [Unknown]
  - Maternal exposure during pregnancy [Recovered/Resolved]

NARRATIVE: CASE EVENT DATE: 20210531
